FAERS Safety Report 9467728 (Version 1)
Quarter: 2013Q3

REPORT INFORMATION
  Report Type: Spontaneous
  Country: US (occurrence: None)
  Receive Date: 20130819
  Receipt Date: 20130819
  Transmission Date: 20140515
  Serious: Yes (Life-Threatening, Hospitalization, Disabling)
  Sender: FDA-Public Use
  Company Number: None

PATIENT
  Age: 44 Year
  Sex: Male
  Weight: 99.79 kg

DRUGS (1)
  1. KENALOG-40 INJ [Suspect]
     Indication: JOINT INJURY
     Dosage: 2CC?AS NEEDED
     Dates: start: 20120815, end: 20130207

REACTIONS (2)
  - Pancreatitis acute [None]
  - Pain [None]
